FAERS Safety Report 4618580-X (Version None)
Quarter: 2005Q1

REPORT INFORMATION
  Report Type: 
  Country: None (occurrence: None)
  Receive Date: 20050323
  Receipt Date: 20050311
  Transmission Date: 20050727
  Serious: Yes (Death)
  Sender: FDA-Public Use
  Company Number: NUBN20050007

PATIENT
  Sex: Male
  Weight: 2.9 kg

DRUGS (7)
  1. NUBAIN [Suspect]
     Dosage: 20 MG ONCE T-PLAC
     Route: 064
     Dates: start: 20041219, end: 20041219
  2. PERFALGAN 10MG/ML BMS [Suspect]
     Dosage: 1 G ONCE T-PLAC
     Route: 064
     Dates: start: 20041219, end: 20041219
  3. ERYTHROMYCIN [Suspect]
     Dosage: 1 G ONCE T-PLAC
     Route: 064
     Dates: start: 20041219, end: 20041219
  4. SUFENTA TAYLOR [Suspect]
     Indication: EPIDURAL ANAESTHESIA
     Dosage: ONCE T-PLAC
     Route: 064
     Dates: start: 20041219, end: 20041219
  5. NAROPIN [Suspect]
     Indication: EPIDURAL ANAESTHESIA
     Dosage: ONCE, T-PLAC
     Route: 064
     Dates: start: 20041219, end: 20041219
  6. ATARAX [Suspect]
     Dosage: 100 MG ONCE T-PLAC
     Route: 064
     Dates: start: 20041219, end: 20041219
  7. SYNTOCINON [Suspect]
     Dosage: 5/10 IU 2 DOSES, PO
     Route: 048
     Dates: start: 20041219, end: 20041219

REACTIONS (3)
  - CARDIO-RESPIRATORY ARREST NEONATAL [None]
  - DRUG EXPOSURE DURING PREGNANCY [None]
  - DRUG EXPOSURE VIA BREAST MILK [None]
